FAERS Safety Report 17113931 (Version 5)
Quarter: 2020Q4

REPORT INFORMATION
  Report Type: Report from Study
  Country: FR (occurrence: FR)
  Receive Date: 20191205
  Receipt Date: 20201113
  Transmission Date: 20210113
  Serious: Yes (Hospitalization)
  Sender: FDA-Public Use
  Company Number: FR-ROCHE-2486579

PATIENT
  Age: 58 Year
  Sex: Female
  Weight: 66 kg

DRUGS (10)
  1. CISPLATIN. [Concomitant]
     Active Substance: CISPLATIN
     Indication: MANTLE CELL LYMPHOMA
     Dates: start: 20180205, end: 20180416
  2. ETOPOSIDE. [Concomitant]
     Active Substance: ETOPOSIDE
     Indication: MANTLE CELL LYMPHOMA
     Dates: start: 20180608, end: 20180608
  3. OXALIPLATIN. [Concomitant]
     Active Substance: OXALIPLATIN
     Indication: MANTLE CELL LYMPHOMA
     Dates: start: 20180205, end: 20180416
  4. CARBOPLATIN. [Concomitant]
     Active Substance: CARBOPLATIN
     Indication: MANTLE CELL LYMPHOMA
     Dates: start: 20180205, end: 20180416
  5. CYTARABINE. [Concomitant]
     Active Substance: CYTARABINE
     Dates: start: 20180608, end: 20180608
  6. MELPHALAN. [Concomitant]
     Active Substance: MELPHALAN
     Indication: MANTLE CELL LYMPHOMA
     Dates: start: 20180608, end: 20180608
  7. DEXAMETHASONE. [Concomitant]
     Active Substance: DEXAMETHASONE
     Indication: MANTLE CELL LYMPHOMA
     Dates: start: 20180205, end: 20180416
  8. CYTARABINE. [Concomitant]
     Active Substance: CYTARABINE
     Indication: MANTLE CELL LYMPHOMA
     Dates: start: 20180205, end: 20180416
  9. OBINUTUZUMAB. [Suspect]
     Active Substance: OBINUTUZUMAB
     Indication: MANTLE CELL LYMPHOMA
     Dosage: LAST ADMINISTRATION BEFORE SAE: 13/SEP/2019
     Route: 042
     Dates: start: 20180205
  10. CARMUSTINE. [Concomitant]
     Active Substance: CARMUSTINE
     Indication: MANTLE CELL LYMPHOMA
     Dates: start: 20180608, end: 20180608

REACTIONS (2)
  - Dyspnoea [Not Recovered/Not Resolved]
  - Interstitial lung disease [Recovered/Resolved]

NARRATIVE: CASE EVENT DATE: 20191102
